FAERS Safety Report 20946460 (Version 1)
Quarter: 2022Q2

REPORT INFORMATION
  Report Type: Spontaneous
  Country: DE (occurrence: DE)
  Receive Date: 20220610
  Receipt Date: 20220610
  Transmission Date: 20220721
  Serious: Yes (Life-Threatening)
  Sender: FDA-Public Use
  Company Number: DE-PEI-202200114908

PATIENT
  Age: 30 Year
  Sex: Female
  Weight: 85 kg

DRUGS (1)
  1. OCREVUS [Suspect]
     Active Substance: OCRELIZUMAB
     Indication: Multiple sclerosis
     Route: 065
     Dates: start: 2018

REACTIONS (1)
  - Pneumonitis [Not Recovered/Not Resolved]

NARRATIVE: CASE EVENT DATE: 20220301
